FAERS Safety Report 8901073 (Version 1)
Quarter: 2012Q4

REPORT INFORMATION
  Report Type: 
  Country: BR (occurrence: BR)
  Receive Date: 20121109
  Receipt Date: 20121109
  Transmission Date: 20130627
  Serious: Yes (Death, Hospitalization)
  Sender: FDA-Public Use
  Company Number: BR-B.I. PHARMACEUTICALS,INC./RIDGEFIELD-2012-BR-01258BR

PATIENT
  Age: 74 Year
  Sex: Female

DRUGS (3)
  1. PRADAXA [Suspect]
     Indication: DEEP VEIN THROMBOSIS
     Dosage: 220 mg
     Route: 048
     Dates: start: 201210, end: 201210
  2. PRADAXA [Suspect]
     Indication: PULMONARY EMBOLISM
  3. NORADRENALINE [Concomitant]

REACTIONS (4)
  - Respiratory failure [Fatal]
  - Cardiogenic shock [Fatal]
  - Meningitis aseptic [Unknown]
  - Pyrexia [Unknown]
